FAERS Safety Report 19105587 (Version 1)
Quarter: 2021Q2

REPORT INFORMATION
  Report Type: Spontaneous
  Country: MA (occurrence: MA)
  Receive Date: 20210407
  Receipt Date: 20210407
  Transmission Date: 20210717
  Serious: Yes (Death)
  Sender: FDA-Public Use
  Company Number: MA-FRESENIUS KABI-FK202103537

PATIENT
  Age: 36 Year

DRUGS (2)
  1. ANTIBIOTICS [Suspect]
     Active Substance: UNSPECIFIED INGREDIENT
     Indication: THROMBOPHLEBITIS SEPTIC
     Route: 065
  2. HEPARIN (MANUFACTURER UNKNOWN) [Suspect]
     Active Substance: HEPARIN SODIUM
     Indication: THROMBOPHLEBITIS SEPTIC
     Route: 065

REACTIONS (1)
  - Treatment failure [Fatal]
